FAERS Safety Report 8300556-2 (Version None)
Quarter: 2012Q2

REPORT INFORMATION
  Report Type: 
  Country: None (occurrence: None)
  Receive Date: 20120418
  Receipt Date: 20120418
  Transmission Date: 20120825
  Serious: No
  Sender: FDA-Public Use
  Company Number: None

PATIENT
  Age: 49 Year
  Sex: Male

DRUGS (1)
  1. ENBREL 50MG AMGEN QW SQ [Suspect]
     Indication: PSORIASIS
     Dosage: 50MG QW SQ
     Route: 058
     Dates: start: 20110901

REACTIONS (6)
  - HOT FLUSH [None]
  - FEELING COLD [None]
  - ABDOMINAL DISTENSION [None]
  - HYPERHIDROSIS [None]
  - SKIN DISCOLOURATION [None]
  - PSORIASIS [None]
